FAERS Safety Report 17212283 (Version 1)
Quarter: 2019Q4

REPORT INFORMATION
  Report Type: Spontaneous
  Country: JP (occurrence: JP)
  Receive Date: 20191230
  Receipt Date: 20191230
  Transmission Date: 20200122
  Serious: Yes (Hospitalization, Other)
  Sender: FDA-Public Use
  Company Number: JP-009507513-1911JPN001056J

PATIENT
  Age: 88 Year
  Sex: Female
  Weight: 40.7 kg

DRUGS (2)
  1. FOSAMAC TABLETS 35MG [Suspect]
     Active Substance: ALENDRONATE SODIUM
     Indication: OSTEOPOROSIS
     Dosage: 35 MILLIGRAM, QW
     Route: 048
     Dates: start: 201203, end: 20160928
  2. REMINYL [Concomitant]
     Active Substance: GALANTAMINE
     Dosage: 8 MILLIGRAM/DAY
     Route: 048

REACTIONS (2)
  - Abscess jaw [Recovering/Resolving]
  - Osteonecrosis of jaw [Not Recovered/Not Resolved]

NARRATIVE: CASE EVENT DATE: 20160928
